FAERS Safety Report 23398831 (Version 1)
Quarter: 2024Q1

REPORT INFORMATION
  Report Type: Spontaneous
  Country: CA (occurrence: CA)
  Receive Date: 20240112
  Receipt Date: 20240112
  Transmission Date: 20240410
  Serious: Yes (Other)
  Sender: FDA-Public Use
  Company Number: CA-ANIPHARMA-2024-CA-000232

PATIENT
  Sex: Female

DRUGS (3)
  1. CANDESARTAN [Suspect]
     Active Substance: CANDESARTAN
     Indication: Arteriosclerosis
     Dosage: 8 MG DAILY
     Route: 048
  2. ATORVASTATIN CALCIUM [Suspect]
     Active Substance: ATORVASTATIN CALCIUM
     Route: 065
  3. HYDROCHLOROTHIAZIDE [Suspect]
     Active Substance: HYDROCHLOROTHIAZIDE
     Dosage: 12.5 MG DAILY
     Route: 065

REACTIONS (9)
  - Alanine aminotransferase increased [Unknown]
  - Blood glucose increased [Unknown]
  - Gamma-glutamyltransferase increased [Unknown]
  - Glycosylated haemoglobin increased [Unknown]
  - Hepatic steatosis [Unknown]
  - Myalgia [Unknown]
  - Neutrophil count decreased [Unknown]
  - Red cell distribution width decreased [Unknown]
  - White blood cell count decreased [Unknown]
